FAERS Safety Report 8157301-3 (Version None)
Quarter: 2012Q1

REPORT INFORMATION
  Report Type: 
  Country: None (occurrence: None)
  Receive Date: 20120222
  Receipt Date: 20120216
  Transmission Date: 20120608
  Serious: Yes (Hospitalization)
  Sender: FDA-Public Use
  Company Number: FR-ROCHE-1041033

PATIENT
  Age: 42 Year
  Sex: Female

DRUGS (1)
  1. ROCEPHIN [Suspect]
     Indication: LUNG DISORDER
     Route: 042

REACTIONS (2)
  - VENOUS THROMBOSIS [None]
  - ANAEMIA [None]
